FAERS Safety Report 6992928 (Version 4)
Quarter: 2014Q1

REPORT INFORMATION
  Report Type: Spontaneous
  Country: MX (occurrence: MX)
  Receive Date: 20090513
  Receipt Date: 20140305
  Transmission Date: 20141002
  Serious: Yes (Death, Hospitalization, Other)
  Sender: FDA-Public Use
  Company Number: PHHY2009MX16754

PATIENT
  Age: 68 Year
  Sex: Female

DRUGS (7)
  1. ZELMAC [Suspect]
     Indication: IRRITABLE BOWEL SYNDROME
     Dosage: 6 MG, UNK
     Route: 048
     Dates: start: 200701
  2. ZELMAC [Suspect]
     Dosage: HALF TABLET OF ZELMAC IN MORNINGS AND THE SECOND HALF AT NIGHTS
     Route: 048
     Dates: start: 200712
  3. ZELMAC [Suspect]
     Dosage: DOSE OF A QUARTER TABLETS
     Route: 048
  4. ZELMAC [Suspect]
     Dosage: HALF TABLET AT NIGHT
     Route: 048
  5. FUROSEMIDE [Concomitant]
  6. OMEPRAZOL [Concomitant]
  7. FOLIC ACID [Concomitant]

REACTIONS (13)
  - Hepatic cirrhosis [Fatal]
  - Headache [Fatal]
  - Pyrexia [Fatal]
  - Dizziness [Fatal]
  - Faeces discoloured [Fatal]
  - Hepatic cancer [Fatal]
  - Encephalopathy [Unknown]
  - Vein disorder [Not Recovered/Not Resolved]
  - Urinary tract disorder [Not Recovered/Not Resolved]
  - Gastritis [Not Recovered/Not Resolved]
  - Immune system disorder [Not Recovered/Not Resolved]
  - Constipation [Recovered/Resolved]
  - Wrong technique in drug usage process [Recovered/Resolved]
